FAERS Safety Report 7778960-0 (Version None)
Quarter: 2011Q3

REPORT INFORMATION
  Report Type: 
  Country: None (occurrence: None)
  Receive Date: 20110926
  Receipt Date: 20110913
  Transmission Date: 20111222
  Serious: No
  Sender: FDA-Public Use
  Company Number: US-B.I. PHARMACEUTICALS,INC./RIDGEFIELD-2011-BP-22171BP

PATIENT
  Sex: Male

DRUGS (4)
  1. LISINOPRIL [Suspect]
     Indication: HYPERTENSION
     Route: 048
     Dates: start: 20110829
  2. MULTI-VITAMIN [Concomitant]
     Indication: PROPHYLAXIS
     Route: 048
     Dates: start: 20000101
  3. FISH OIL [Concomitant]
     Indication: PROPHYLAXIS
     Dosage: 600 MG
     Route: 048
     Dates: start: 20000101
  4. SPIRIVA [Suspect]
     Indication: CHRONIC OBSTRUCTIVE PULMONARY DISEASE
     Dosage: 18 MCG
     Route: 055
     Dates: start: 20110911

REACTIONS (3)
  - OROPHARYNGEAL PAIN [None]
  - UPPER-AIRWAY COUGH SYNDROME [None]
  - NASOPHARYNGITIS [None]
